FAERS Safety Report 6490027-0 (Version None)
Quarter: 2009Q4

REPORT INFORMATION
  Report Type: 
  Country: None (occurrence: None)
  Receive Date: 20091124
  Receipt Date: 20091124
  Transmission Date: 20100525
  Serious: Yes (Death, Hospitalization)
  Sender: FDA-Public Use
  Company Number: AMI0005338

PATIENT
  Age: 58 Year
  Sex: Male

DRUGS (1)
  1. MEPHYTON [Suspect]
     Indication: HAEMOLYSIS

REACTIONS (2)
  - DEATH [None]
  - DRUG INEFFECTIVE [None]
